FAERS Safety Report 9846845 (Version 1)
Quarter: 2013Q4

REPORT INFORMATION
  Report Type: Spontaneous
  Country: US (occurrence: None)
  Receive Date: 20131219
  Receipt Date: 20131219
  Transmission Date: 20140711
  Serious: Yes (Hospitalization)
  Sender: FDA-Public Use
  Company Number: 163-20785-13071647

PATIENT
  Age: 67 Year
  Sex: Female
  Weight: 105.24 kg

DRUGS (1)
  1. THALIDOMID [Suspect]
     Indication: NEURODERMATITIS
     Dosage: 200 MG ,  1 IN 1 D, PO
     Route: 048
     Dates: start: 201209

REACTIONS (3)
  - Urinary tract infection [None]
  - Asthenia [None]
  - Fatigue [None]
